FAERS Safety Report 7685015-2 (Version None)
Quarter: 2011Q3

REPORT INFORMATION
  Report Type: 
  Country: None (occurrence: None)
  Receive Date: 20110816
  Receipt Date: 20110803
  Transmission Date: 20111222
  Serious: Yes (Other)
  Sender: FDA-Public Use
  Company Number: US-UCBSA-037192

PATIENT
  Sex: Female
  Weight: 85 kg

DRUGS (8)
  1. EXCEDRIN MIGRAINE OTC [Concomitant]
     Indication: MIGRAINE
     Route: 048
     Dates: start: 20101201
  2. GENERIC WELLBUTRIN-BUDEPRION XL [Concomitant]
     Indication: DEPRESSION
     Route: 048
     Dates: start: 20101118
  3. CIMZIA [Suspect]
     Indication: CROHN'S DISEASE
     Route: 058
     Dates: start: 20090129
  4. CLARINEX [Concomitant]
     Route: 048
     Dates: start: 20110401
  5. CALCIUM AND VITAMIN D [Concomitant]
     Indication: SUPPLEMENTATION THERAPY
     Dosage: DOSE PER INTAKE:1 TABLET, DAILY DOSE:2 TABLETS
     Route: 048
  6. FLEXERIL [Concomitant]
     Indication: FIBROMYALGIA
     Dosage: PRN
     Route: 048
  7. VITAMIN D [Concomitant]
     Indication: VITAMIN SUPPLEMENTATION
     Dosage: DOSE PER INTAKE:50,000 UNITS 4 TABLETS, MONTHLY:200,000 UNITS
     Route: 048
  8. TRAMADOL HCL [Concomitant]
     Indication: FIBROMYALGIA
     Dosage: PRN DAILY
     Route: 048
     Dates: start: 20100909

REACTIONS (2)
  - PSORIASIS [None]
  - RECTAL ABSCESS [None]
